FAERS Safety Report 17672440 (Version 5)
Quarter: 2022Q1

REPORT INFORMATION
  Report Type: Report from Study
  Country: US (occurrence: US)
  Receive Date: 20200415
  Receipt Date: 20220115
  Transmission Date: 20220423
  Serious: Yes (Hospitalization, Other)
  Sender: FDA-Public Use
  Company Number: US-SHIRE-US202013320

PATIENT
  Sex: Female
  Weight: 59 kg

DRUGS (35)
  1. HUMAN IMMUNOGLOBULIN G [Suspect]
     Active Substance: HUMAN IMMUNOGLOBULIN G
     Indication: Immunodeficiency common variable
     Dosage: 35 GRAM, Q4WEEKS
     Route: 042
     Dates: start: 20181004
  2. HUMAN IMMUNOGLOBULIN G [Suspect]
     Active Substance: HUMAN IMMUNOGLOBULIN G
     Dosage: 50 GRAM, Q4WEEKS
     Route: 042
     Dates: start: 20181004
  3. HUMAN IMMUNOGLOBULIN G [Suspect]
     Active Substance: HUMAN IMMUNOGLOBULIN G
     Dosage: 45 GRAM, Q4WEEKS
     Route: 042
     Dates: start: 20170804
  4. TESSALON [Concomitant]
     Active Substance: BENZONATATE
     Route: 065
  5. LEVALBUTEROL [Concomitant]
     Active Substance: LEVALBUTEROL
     Route: 065
  6. ACETAMINOPHEN [Concomitant]
     Active Substance: ACETAMINOPHEN
     Route: 065
  7. DIPHENHYDRAMINE [Concomitant]
     Active Substance: DIPHENHYDRAMINE
     Route: 065
  8. SODIUM CHLORIDE [Concomitant]
     Active Substance: SODIUM CHLORIDE
     Route: 065
  9. EPINEPHRINE [Concomitant]
     Active Substance: EPINEPHRINE
     Route: 065
  10. VITAMINS [Concomitant]
     Active Substance: VITAMINS
     Route: 065
  11. WELLBUTRIN [Concomitant]
     Active Substance: BUPROPION HYDROCHLORIDE
     Route: 065
  12. VITAMIN D3 [Concomitant]
     Active Substance: CHOLECALCIFEROL
     Route: 065
  13. EVOXAC [Concomitant]
     Active Substance: CEVIMELINE HYDROCHLORIDE
     Route: 065
  14. SOMA [Concomitant]
     Active Substance: CARISOPRODOL
     Route: 065
  15. PERCOCET [Concomitant]
     Active Substance: ACETAMINOPHEN\OXYCODONE HYDROCHLORIDE
     Route: 065
  16. OMEPRAZOLE [Concomitant]
     Active Substance: OMEPRAZOLE
     Route: 065
  17. KLOR-CON [Concomitant]
     Active Substance: POTASSIUM CHLORIDE
     Route: 065
  18. LASIX [Concomitant]
     Active Substance: FUROSEMIDE
     Route: 065
  19. ZANTAC [Concomitant]
     Active Substance: RANITIDINE HYDROCHLORIDE
     Route: 065
  20. METOPROLOL [Concomitant]
     Active Substance: METOPROLOL
     Route: 065
  21. BETHANECHOL [Concomitant]
     Active Substance: BETHANECHOL
     Route: 065
  22. ALBUTEROL [Concomitant]
     Active Substance: ALBUTEROL
     Route: 065
  23. PROMETHAZINE [Concomitant]
     Active Substance: PROMETHAZINE HYDROCHLORIDE
     Route: 065
  24. BUDESONIDE [Concomitant]
     Active Substance: BUDESONIDE
     Route: 065
  25. ASPIRIN [Concomitant]
     Active Substance: ASPIRIN
     Route: 065
  26. CRESTOR [Concomitant]
     Active Substance: ROSUVASTATIN CALCIUM
     Route: 065
  27. HYDROXYZINE [Concomitant]
     Active Substance: HYDROXYZINE HYDROCHLORIDE
     Route: 065
  28. TRAZODONE [Concomitant]
     Active Substance: TRAZODONE HYDROCHLORIDE
     Route: 065
  29. LUNESTA [Concomitant]
     Active Substance: ESZOPICLONE
     Route: 065
  30. TYLENOL [Concomitant]
     Active Substance: ACETAMINOPHEN
     Route: 065
  31. DOCUSATE [Concomitant]
     Active Substance: DOCUSATE
  32. TRIAMCINOLONE [Concomitant]
     Active Substance: TRIAMCINOLONE
  33. ACTEMRA [Concomitant]
     Active Substance: TOCILIZUMAB
  34. VITAMIN C [Concomitant]
     Active Substance: ASCORBIC ACID
  35. NIFEDIPINE [Concomitant]
     Active Substance: NIFEDIPINE

REACTIONS (9)
  - Respiratory tract infection [Unknown]
  - Electrolyte imbalance [Unknown]
  - Pelvic fracture [Unknown]
  - Fall [Unknown]
  - Infusion related reaction [Unknown]
  - Vomiting [Unknown]
  - Laboratory test abnormal [Unknown]
  - Blood immunoglobulin G increased [Unknown]
  - Headache [Unknown]
